FAERS Safety Report 6603299-6 (Version None)
Quarter: 2010Q1

REPORT INFORMATION
  Report Type: 
  Country: None (occurrence: None)
  Receive Date: 20100218
  Receipt Date: 20100204
  Transmission Date: 20100710
  Serious: Yes (Other)
  Sender: FDA-Public Use
  Company Number: DSJ-2010-01384

PATIENT
  Age: 53 Year
  Sex: Female
  Weight: 61.9 kg

DRUGS (6)
  1. OLMETEC (OLMESARTAN MEDOXOMIL) (TABLET) (OLMESARTAN MEDOXOMIL) [Suspect]
     Indication: HYPERTENSION
     Dosage: 20 MG (20 MG, 1 IN 1 D), PER ORAL
     Route: 048
  2. LOXONIN (LOXOPROFEN SODIUM) (TABLET) (LOXOPROFEN SODIUM) [Suspect]
     Indication: INFLUENZA
     Dosage: 180 MG (60 MG, 3 IN 1 D), PER ORAL
     Route: 048
     Dates: start: 20100108, end: 20100113
  3. AVELOX [Suspect]
     Indication: INFLUENZA
     Dosage: 400 MG (400 MG, 1 IN 1 D), PER ORAL
     Route: 048
     Dates: start: 20100108, end: 20100113
  4. NIPOLAZIN (MEQUITAZINE) (TABLET) (MEQUITAZINE) [Suspect]
     Indication: INFLUENZA
     Dosage: 6 MG 93 MG, 2 IN 1 D), PER ORAL
     Route: 048
     Dates: start: 20100108, end: 20100113
  5. NAUZELIN (DOMPERIDONE) (TABLET) (DOMPERIDONE) [Suspect]
     Indication: INFLUENZA
     Dosage: 30 MG 910 MG, 3 IN 1 D), PER ORAL
     Route: 048
     Dates: start: 20100108, end: 20100113
  6. LIPITOR [Suspect]
     Indication: HYPERLIPIDAEMIA
     Dosage: 5 MG (5 MG, 1 IN 1 D), PER ORAL
     Route: 048

REACTIONS (4)
  - INFLUENZA [None]
  - INSOMNIA [None]
  - LYMPHOCYTE STIMULATION TEST POSITIVE [None]
  - PNEUMONIA [None]
